FAERS Safety Report 8776727 (Version 2)
Quarter: 2015Q1

REPORT INFORMATION
  Report Type: Spontaneous
  Country: DE (occurrence: DE)
  Receive Date: 20120910
  Receipt Date: 20150106
  Transmission Date: 20150721
  Serious: Yes (Other)
  Sender: FDA-Public Use
  Company Number: DE-RANBAXY-2012R1-59667

PATIENT
  Age: 18 Year
  Sex: Female

DRUGS (1)
  1. MINOCYCLINE HYDROCHLORIDE. [Suspect]
     Active Substance: MINOCYCLINE HYDROCHLORIDE
     Indication: ACNE
     Dosage: 100 MG, DAILY
     Route: 065

REACTIONS (3)
  - Superinfection bacterial [Recovered/Resolved]
  - Photoonycholysis [Recovered/Resolved]
  - Superinfection fungal [Recovered/Resolved]
